FAERS Safety Report 5861442-0 (Version None)
Quarter: 2008Q3

REPORT INFORMATION
  Report Type: 
  Country: None (occurrence: None)
  Receive Date: 20080826
  Receipt Date: 20080815
  Transmission Date: 20090109
  Serious: Yes (Other)
  Sender: FDA-Public Use
  Company Number: 2008AL009247

PATIENT
  Age: 66 Year
  Sex: Male
  Weight: 102.0593 kg

DRUGS (1)
  1. DIGOXIN [Suspect]
     Indication: CARDIAC DISORDER
     Dosage: 0.25MG, PRN, PO
     Route: 048
     Dates: start: 19800101, end: 20080101

REACTIONS (5)
  - DRUG LEVEL INCREASED [None]
  - DYSGEUSIA [None]
  - HEART RATE IRREGULAR [None]
  - PHARMACEUTICAL PRODUCT COMPLAINT [None]
  - RASH [None]
